FAERS Safety Report 22143131 (Version 1)
Quarter: 2023Q1

REPORT INFORMATION
  Report Type: Spontaneous
  Country: US (occurrence: None)
  Receive Date: 20230324
  Receipt Date: 20230324
  Transmission Date: 20230417
  Serious: No
  Sender: FDA-Public Use
  Company Number: None

PATIENT

DRUGS (1)
  1. AQUASOL A [Suspect]
     Active Substance: VITAMIN A PALMITATE

REACTIONS (2)
  - Product dose confusion [None]
  - Extra dose administered [None]
